FAERS Safety Report 7473800-1 (Version None)
Quarter: 2011Q2

REPORT INFORMATION
  Report Type: 
  Country: None (occurrence: None)
  Receive Date: 20110503
  Receipt Date: 20110418
  Transmission Date: 20111010
  Serious: Yes (Other)
  Sender: FDA-Public Use
  Company Number: AUR-APL-2011-01426

PATIENT
  Sex: Female

DRUGS (1)
  1. METFORMIN HYDROCHLORIDE [Suspect]

REACTIONS (14)
  - SHOCK [None]
  - ACIDOSIS [None]
  - BLOOD UREA INCREASED [None]
  - CONFUSIONAL STATE [None]
  - HYPOGLYCAEMIA [None]
  - BLOOD CREATININE INCREASED [None]
  - URINARY TRACT INFECTION [None]
  - DECREASED APPETITE [None]
  - BLOOD POTASSIUM INCREASED [None]
  - PANCREATITIS ACUTE [None]
  - OLIGURIA [None]
  - TOXICITY TO VARIOUS AGENTS [None]
  - CLOSTRIDIUM DIFFICILE COLITIS [None]
  - HYPOTHERMIA [None]
